FAERS Safety Report 4527243-0 (Version None)
Quarter: 2004Q4

REPORT INFORMATION
  Report Type: 
  Country: None (occurrence: None)
  Receive Date: 20041214
  Receipt Date: 20041214
  Transmission Date: 20050328
  Serious: No
  Sender: FDA-Public Use
  Company Number: None

PATIENT
  Age: 45 Year
  Sex: Female
  Weight: 95.2554 kg

DRUGS (3)
  1. AEROBID [Suspect]
     Indication: INFECTION
     Dosage: SEE IMAGE
     Dates: start: 20041103, end: 20041113
  2. AEROBID [Suspect]
     Indication: INFLAMMATION
     Dosage: SEE IMAGE
     Dates: start: 20041103, end: 20041113
  3. AEROBID [Suspect]
     Indication: VOCAL CORD DISORDER
     Dosage: SEE IMAGE
     Dates: start: 20041103, end: 20041113

REACTIONS (5)
  - BURNING SENSATION [None]
  - CANDIDIASIS [None]
  - LUNG DISORDER [None]
  - ORAL DISCOMFORT [None]
  - THROAT IRRITATION [None]
